FAERS Safety Report 7214661-5 (Version None)
Quarter: 2011Q1

REPORT INFORMATION
  Report Type: 
  Country: None (occurrence: None)
  Receive Date: 20110107
  Receipt Date: 20101220
  Transmission Date: 20110831
  Serious: Yes (Other)
  Sender: FDA-Public Use
  Company Number: PHHY2010DK86524

PATIENT
  Sex: Male

DRUGS (3)
  1. ZOMETA [Suspect]
     Indication: OSTEOPOROSIS
     Dosage: 4 MG, UNK
     Route: 042
     Dates: start: 20100212, end: 20100510
  2. ZOMETA [Suspect]
     Indication: METASTASES TO BONE
  3. SUTENT [Suspect]
     Indication: RENAL CANCER
     Dosage: 50 MG, QD
     Route: 048
     Dates: start: 20100212, end: 20100621

REACTIONS (3)
  - OSTEONECROSIS OF JAW [None]
  - ORAL DISCOMFORT [None]
  - ORAL PAIN [None]
